FAERS Safety Report 4877987-6 (Version None)
Quarter: 2006Q1

REPORT INFORMATION
  Report Type: 
  Country: None (occurrence: None)
  Receive Date: 20060110
  Receipt Date: 20060102
  Transmission Date: 20060701
  Serious: Yes (Other)
  Sender: FDA-Public Use
  Company Number: 2006-CZ-00042

PATIENT
  Age: 43 Year
  Sex: Male

DRUGS (8)
  1. GABAPENTIN [Suspect]
     Indication: RESTLESS LEGS SYNDROME
     Dosage: 100 MG AT BEDTIME
     Dates: start: 20030604
  2. EPOGEN [Concomitant]
  3. MULTI-VITAMIN [Concomitant]
  4. AMLODIPINE [Concomitant]
  5. ATORVASTATIN [Concomitant]
  6. CALCITRIOL [Concomitant]
  7. ZOPICLONE [Concomitant]
  8. SACCHARATED IRON OXIDE [Concomitant]

REACTIONS (3)
  - BLOOD CREATINE PHOSPHOKINASE INCREASED [None]
  - EYELID FUNCTION DISORDER [None]
  - HYPOAESTHESIA ORAL [None]
